FAERS Safety Report 19400295 (Version 4)
Quarter: 2021Q3

REPORT INFORMATION
  Report Type: Report from Study
  Country: US (occurrence: US)
  Receive Date: 20210610
  Receipt Date: 20210816
  Transmission Date: 20211014
  Serious: Yes (Other)
  Sender: FDA-Public Use
  Company Number: US-GLAXOSMITHKLINE-US2021AMR004149

PATIENT
  Age: 82 Year
  Sex: Female

DRUGS (1)
  1. BELANTAMAB MAFODOTIN. [Suspect]
     Active Substance: BELANTAMAB MAFODOTIN
     Indication: PRODUCT USED FOR UNKNOWN INDICATION
     Dosage: 163 MG
     Route: 042
     Dates: start: 20201026

REACTIONS (12)
  - Keratopathy [Unknown]
  - Night blindness [Recovered/Resolved]
  - Foreign body sensation in eyes [Recovered/Resolved]
  - Lung neoplasm malignant [Unknown]
  - Visual acuity reduced [Unknown]
  - Keratitis [Recovered/Resolved]
  - Dry eye [Unknown]
  - Blepharitis [Recovered/Resolved]
  - Corneal epithelial microcysts [Unknown]
  - Vision blurred [Recovered/Resolved]
  - Corneal oedema [Recovered/Resolved]
  - Conjunctivochalasis [Recovered/Resolved]

NARRATIVE: CASE EVENT DATE: 20201231
